FAERS Safety Report 9252150 (Version 1)
Quarter: 2013Q1

REPORT INFORMATION
  Report Type: Spontaneous
  Country: US (occurrence: None)
  Receive Date: 20130305
  Receipt Date: 20130305
  Transmission Date: 20140127
  Serious: Yes (Other)
  Sender: FDA-Public Use
  Company Number: 163-21880-12082689

PATIENT
  Age: 67 Year
  Sex: Female
  Weight: 72.58 kg

DRUGS (10)
  1. REVLIMID [Suspect]
     Indication: PLASMA CELL MYELOMA
     Dosage: 25MG, 1 IN 1 D, PO
     Route: 048
     Dates: start: 201003
  2. ASPIRIN (ACETYLSALSALICYLIC ACID) [Concomitant]
  3. CALCIUM + D (OS-CAL) [Concomitant]
  4. HYDROCHLOROTHIAZIDE (HYDROCHLOROTHIAZIDE) [Concomitant]
  5. MULTIVITAMINS (MULTAMINS) [Concomitant]
  6. PRILOSEC [Concomitant]
  7. STOOL SOFTENER (DOCUSATE SODIUM) [Concomitant]
  8. VERAPAMIL (VERAPAMIL) [Concomitant]
  9. VITAMIN D (ERGOCALCIFEROL) [Concomitant]
  10. ZOMETA (ZOLEDRONIC ACID) [Concomitant]

REACTIONS (1)
  - Leukopenia [None]
